FAERS Safety Report 8311717-0 (Version None)
Quarter: 2012Q1

REPORT INFORMATION
  Report Type: 
  Country: None (occurrence: None)
  Receive Date: 20120315
  Receipt Date: 20110613
  Transmission Date: 20120608
  Serious: No
  Sender: FDA-Public Use
  Company Number: PHHY2011US52111

PATIENT
  Age: 32 Year
  Sex: Male
  Weight: 65.8 kg

DRUGS (4)
  1. VITAMIN D [Concomitant]
  2. FISH OIL (FISH OIL) [Concomitant]
  3. GILENYA [Suspect]
     Dosage: 0.5 MG, QD, ORAL
     Route: 048
  4. MULTIVITAMINS (ASCORBIC ACID, ERGOCALCIFEROL, FOLIC ACID, NICOTINAMIDE [Concomitant]

REACTIONS (2)
  - AXILLARY PAIN [None]
  - CHEST DISCOMFORT [None]
